FAERS Safety Report 21605560 (Version 2)
Quarter: 2023Q1

REPORT INFORMATION
  Report Type: Spontaneous
  Country: US (occurrence: US)
  Receive Date: 20221116
  Receipt Date: 20230112
  Transmission Date: 20230418
  Serious: No
  Sender: FDA-Public Use
  Company Number: US-BAUSCH-BL-2022-024989

PATIENT
  Age: 68 Year
  Sex: Female
  Weight: 40.82 kg

DRUGS (8)
  1. ATIVAN [Interacting]
     Active Substance: LORAZEPAM
     Indication: Anxiety
     Dosage: HAD BEEN ON IT FOR  MANY YEARS, 4 OR 5 HOURS BEFORE THE SHOT AND NOT FOR EVERYONE
     Route: 065
  2. PFIZER-BIONTECH COVID-19 VACCINE [Suspect]
     Active Substance: TOZINAMERAN
     Indication: Prophylaxis
     Dosage: 1ST DOSE, UNKNOWN DOSE. INJECTED IN RIGHT ARM.
     Route: 065
     Dates: start: 20210316
  3. PFIZER-BIONTECH COVID-19 VACCINE [Suspect]
     Active Substance: TOZINAMERAN
     Dosage: 2ND DOSE, UNKNOWN DOSE. INJECTED IN RIGHT ARM.
     Route: 065
     Dates: start: 20210413
  4. PFIZER-BIONTECH COVID-19 VACCINE [Suspect]
     Active Substance: TOZINAMERAN
     Dosage: 3RD DOSE, UNKNOWN DOSE. INJECTED IN RIGHT ARM.
     Route: 065
     Dates: start: 20211019
  5. PFIZER-BIONTECH COVID-19 VACCINE [Suspect]
     Active Substance: TOZINAMERAN
     Dosage: BOOSTER, UNKNOWN DOSE. INJECTED IN RIGHT ARM.
     Route: 065
     Dates: start: 20220517
  6. LEXAPRO [Suspect]
     Active Substance: ESCITALOPRAM OXALATE
     Indication: Product used for unknown indication
     Dosage: A FEW MONTHS AGO, VERY SMALL DOSE OF LEXAPRO AND THEY WERE TAKEN ABOUT 3 HOURS OF EACH OTHER
     Route: 065
     Dates: end: 2022
  7. INFLUENZA VIRUS VACCINE [Suspect]
     Active Substance: INFLUENZA VIRUS VACCINE
     Indication: Product used for unknown indication
     Dosage: INFLUENZA VACCINE (FLU SHOT)
     Route: 065
     Dates: start: 2022
  8. SYNTHROID [Concomitant]
     Active Substance: LEVOTHYROXINE SODIUM
     Indication: Thyroid disorder
     Dosage: STARTED 40 YEARS AGO

REACTIONS (4)
  - Palpitations [Recovered/Resolved]
  - Ill-defined disorder [Recovered/Resolved]
  - Drug interaction [Unknown]
  - Drug ineffective [Unknown]

NARRATIVE: CASE EVENT DATE: 20220101
